FAERS Safety Report 8470830-8 (Version None)
Quarter: 2012Q2

REPORT INFORMATION
  Report Type: 
  Country: None (occurrence: None)
  Receive Date: 20120627
  Receipt Date: 20120619
  Transmission Date: 20120825
  Serious: Yes (Other)
  Sender: FDA-Public Use
  Company Number: US-BRISTOL-MYERS SQUIBB COMPANY-16696932

PATIENT
  Age: 60 Year
  Sex: Female
  Weight: 104 kg

DRUGS (2)
  1. PREDNISONE TAB [Concomitant]
  2. ORENCIA [Suspect]
     Indication: RHEUMATOID ARTHRITIS
     Dosage: LAST INFUSION ON 06-JUN-2012
     Route: 042

REACTIONS (2)
  - INTERVERTEBRAL DISC DEGENERATION [None]
  - HEADACHE [None]
